FAERS Safety Report 8955339 (Version 2)
Quarter: 2013Q1

REPORT INFORMATION
  Report Type: Report from Study
  Country: US (occurrence: US)
  Receive Date: 20121207
  Receipt Date: 20130102
  Transmission Date: 20140127
  Serious: Yes (Other)
  Sender: FDA-Public Use
  Company Number: US-ABBOTT-12P-163-1015340-00

PATIENT
  Sex: Female
  Weight: 90.8 kg

DRUGS (4)
  1. LUPRON DEPOT [Suspect]
     Indication: ENDOMETRIOSIS
     Route: 030
     Dates: start: 200709
  2. UNSPECIFIED INGREDIENT [Suspect]
     Indication: PRODUCT USED FOR UNKNOWN INDICATION
  3. UNKNOWN OVER THE COUNTER MEDICATIONS [Concomitant]
     Indication: PRODUCT USED FOR UNKNOWN INDICATION
  4. ZYRTEC [Concomitant]
     Indication: HYPERSENSITIVITY

REACTIONS (6)
  - Sinusitis [Recovered/Resolved]
  - Ear infection [Recovered/Resolved]
  - Hypertension [Recovered/Resolved]
  - Blood calcium increased [Unknown]
  - Arthralgia [Unknown]
  - Arthritis [Unknown]
